FAERS Safety Report 8375565-8 (Version None)
Quarter: 2012Q2

REPORT INFORMATION
  Report Type: 
  Country: None (occurrence: None)
  Receive Date: 20120522
  Receipt Date: 20120511
  Transmission Date: 20120825
  Serious: Yes (Other)
  Sender: FDA-Public Use
  Company Number: JP-VERTEX PHARMACEUTICALS INC.-AE-2012-007240

PATIENT
  Age: 60 Year
  Sex: Female

DRUGS (11)
  1. TELAVIC (TELAPREVIR) [Suspect]
     Route: 048
     Dates: start: 20120326
  2. REBETOL [Concomitant]
     Indication: HEPATITIS C
     Route: 048
     Dates: start: 20120316, end: 20120324
  3. RABEPRAZOLE SODIUM [Concomitant]
     Route: 048
     Dates: start: 20120406
  4. PROMACTA [Concomitant]
     Route: 048
     Dates: start: 20120427
  5. REBETOL [Concomitant]
     Route: 048
     Dates: start: 20120421
  6. LEVOTHYROXINE SODIUM [Concomitant]
     Route: 048
  7. PROMACTA [Concomitant]
     Route: 048
     Dates: end: 20120327
  8. TELAVIC (TELAPREVIR) [Suspect]
     Indication: HEPATITIS C
     Route: 048
     Dates: start: 20120316, end: 20120324
  9. REBETOL [Concomitant]
     Route: 048
     Dates: start: 20120326, end: 20120330
  10. REBETOL [Concomitant]
     Route: 048
     Dates: start: 20120331, end: 20120420
  11. PEG-INTRON [Concomitant]
     Indication: HEPATITIS C
     Route: 051
     Dates: start: 20120316

REACTIONS (3)
  - HAEMOGLOBIN DECREASED [None]
  - RASH [None]
  - HYPERURICAEMIA [None]
